FAERS Safety Report 7247645-1 (Version None)
Quarter: 2011Q1

REPORT INFORMATION
  Report Type: 
  Country: None (occurrence: None)
  Receive Date: 20110127
  Receipt Date: 20110118
  Transmission Date: 20110831
  Serious: Yes (Hospitalization)
  Sender: FDA-Public Use
  Company Number: CA-JNJFOC-20110105203

PATIENT
  Sex: Male
  Weight: 85 kg

DRUGS (6)
  1. COVERSYL [Concomitant]
  2. REMICADE [Suspect]
     Indication: ANKYLOSING SPONDYLITIS
     Route: 042
  3. OXYCONTIN [Concomitant]
  4. IMOVANE [Concomitant]
  5. GABAPENTIN [Concomitant]
  6. OXYCEL [Concomitant]

REACTIONS (2)
  - DRUG ADMINISTRATION ERROR [None]
  - LOSS OF CONSCIOUSNESS [None]
